FAERS Safety Report 25846617 (Version 1)
Quarter: 2025Q3

REPORT INFORMATION
  Report Type: Spontaneous
  Country: VN (occurrence: VN)
  Receive Date: 20250925
  Receipt Date: 20250925
  Transmission Date: 20251021
  Serious: Yes (Hospitalization, Other)
  Sender: SANDOZ
  Company Number: VN-002147023-NVSC2025VN144781

PATIENT
  Sex: Male

DRUGS (9)
  1. BASILIXIMAB [Suspect]
     Active Substance: BASILIXIMAB
     Indication: Immunosuppression
     Route: 065
  2. EVEROLIMUS [Suspect]
     Active Substance: EVEROLIMUS
     Indication: Product used for unknown indication
     Route: 065
  3. MYCOPHENOLATE MOFETIL [Suspect]
     Active Substance: MYCOPHENOLATE MOFETIL
     Indication: Immunosuppression
     Route: 065
  4. MYCOPHENOLATE MOFETIL [Suspect]
     Active Substance: MYCOPHENOLATE MOFETIL
     Route: 065
  5. TACROLIMUS [Suspect]
     Active Substance: TACROLIMUS
     Route: 065
  6. TACROLIMUS [Suspect]
     Active Substance: TACROLIMUS
     Route: 065
  7. TACROLIMUS [Suspect]
     Active Substance: TACROLIMUS
     Indication: Immunosuppression
     Route: 065
  8. PREDNISONE [Concomitant]
     Active Substance: PREDNISONE
     Route: 065
  9. PREDNISONE [Concomitant]
     Active Substance: PREDNISONE
     Indication: Product used for unknown indication
     Route: 065

REACTIONS (10)
  - Pancreatitis acute [Recovering/Resolving]
  - Transplant dysfunction [Recovering/Resolving]
  - Lipase increased [Unknown]
  - Amylase increased [Unknown]
  - Hypopnoea [Recovering/Resolving]
  - Cytomegalovirus test positive [Recovering/Resolving]
  - Respiratory failure [Recovering/Resolving]
  - Diarrhoea [Recovering/Resolving]
  - Abdominal pain [Recovering/Resolving]
  - Abdominal pain upper [Recovering/Resolving]
